FAERS Safety Report 14650191 (Version 1)
Quarter: 2018Q1

REPORT INFORMATION
  Report Type: Spontaneous
  Country: US (occurrence: US)
  Receive Date: 20180316
  Receipt Date: 20180316
  Transmission Date: 20180509
  Serious: No
  Sender: FDA-Public Use
  Company Number: US-TEVA-2018-US-862038

PATIENT
  Age: 68 Year
  Sex: Female

DRUGS (4)
  1. HYDROXYCHLOROQUINE [Suspect]
     Active Substance: HYDROXYCHLOROQUINE
     Route: 065
  2. BUPROPION. [Suspect]
     Active Substance: BUPROPION
  3. ESCITALOPRAM [Concomitant]
     Active Substance: ESCITALOPRAM OXALATE
  4. BUPROPION. [Suspect]
     Active Substance: BUPROPION
     Indication: DEPRESSION
     Dates: start: 2011

REACTIONS (6)
  - Anxiety [Unknown]
  - Drug ineffective [Unknown]
  - Irritability [Unknown]
  - Feeling abnormal [Unknown]
  - Nervousness [Unknown]
  - Depressed mood [Unknown]

NARRATIVE: CASE EVENT DATE: 20170118
